FAERS Safety Report 6660057-4 (Version None)
Quarter: 2010Q1

REPORT INFORMATION
  Report Type: 
  Country: None (occurrence: None)
  Receive Date: 20100331
  Receipt Date: 20100322
  Transmission Date: 20100710
  Serious: No
  Sender: FDA-Public Use
  Company Number: US-BIOGENIDEC-2010BI010253

PATIENT
  Age: 38 Year
  Sex: Female

DRUGS (1)
  1. TYSABRI [Suspect]
     Indication: MULTIPLE SCLEROSIS
     Route: 042
     Dates: start: 20090723

REACTIONS (10)
  - DEPRESSION [None]
  - DIARRHOEA [None]
  - DRUG INEFFECTIVE [None]
  - HEMIPLEGIA [None]
  - HYPERSENSITIVITY [None]
  - HYPOAESTHESIA [None]
  - MIGRAINE [None]
  - MONOPLEGIA [None]
  - PARAESTHESIA [None]
  - VOMITING [None]
